FAERS Safety Report 13336342 (Version 3)
Quarter: 2017Q2

REPORT INFORMATION
  Report Type: Report from Study
  Country: FR (occurrence: FR)
  Receive Date: 20170315
  Receipt Date: 20170425
  Transmission Date: 20170830
  Serious: Yes (Hospitalization)
  Sender: FDA-Public Use
  Company Number: FR-AMGEN-FRACT2017037870

PATIENT
  Age: 36 Year
  Sex: Female
  Weight: 103 kg

DRUGS (6)
  1. AUGMENTIN [Concomitant]
     Active Substance: AMOXICILLIN\CLAVULANATE POTASSIUM
     Indication: VULVOVAGINAL MYCOTIC INFECTION
     Dosage: 3 G, QD
     Dates: start: 20101223
  2. PANITUMUMAB [Suspect]
     Active Substance: PANITUMUMAB
     Dosage: 885 MG, UNK
     Route: 065
     Dates: start: 20110105
  3. TAXOTERE [Suspect]
     Active Substance: DOCETAXEL
     Indication: BREAST CANCER
     Dosage: 200 MG, UNK
     Route: 042
     Dates: start: 20101215
  4. PANITUMUMAB [Suspect]
     Active Substance: PANITUMUMAB
     Indication: BREAST CANCER
     Dosage: 900 MG, UNK
     Route: 065
     Dates: start: 20100922, end: 20101215
  5. FEC [Concomitant]
     Active Substance: CYCLOPHOSPHAMIDE\EPIRUBICIN HYDROCHLORIDE\FLUOROURACIL
  6. TRIFLUCAN [Concomitant]
     Active Substance: FLUCONAZOLE
     Indication: MUCOSAL INFLAMMATION
     Dosage: 200 MG, UNK
     Dates: start: 20101227, end: 20101228

REACTIONS (1)
  - Febrile bone marrow aplasia [Recovered/Resolved]

NARRATIVE: CASE EVENT DATE: 20101225
